FAERS Safety Report 6358270-9 (Version None)
Quarter: 2009Q3

REPORT INFORMATION
  Report Type: 
  Country: None (occurrence: None)
  Receive Date: 20090916
  Receipt Date: 20090908
  Transmission Date: 20100115
  Serious: Yes (Hospitalization)
  Sender: FDA-Public Use
  Company Number: US-ASTRAZENECA-2009SE11903

PATIENT
  Sex: Male

DRUGS (6)
  1. NEXIUM [Suspect]
     Indication: GASTROOESOPHAGEAL REFLUX DISEASE
     Route: 048
     Dates: start: 20010901
  2. PRILOSEC [Suspect]
     Indication: GASTROOESOPHAGEAL REFLUX DISEASE
     Route: 048
  3. LANOXIN [Concomitant]
     Route: 048
  4. MEXAPINE [Concomitant]
     Route: 048
  5. PLAVIX [Concomitant]
     Route: 048
  6. TOPEL [Concomitant]
     Route: 048

REACTIONS (1)
  - SURGERY [None]
